FAERS Safety Report 4736988-9 (Version None)
Quarter: 2005Q3

REPORT INFORMATION
  Report Type: 
  Country: None (occurrence: None)
  Receive Date: 20050803
  Receipt Date: 20050721
  Transmission Date: 20060218
  Serious: Yes (Other)
  Sender: FDA-Public Use
  Company Number: 2005016993

PATIENT
  Age: 39 Year
  Sex: Female
  Weight: 78.4723 kg

DRUGS (2)
  1. SUDAFED 12 HOUR [Suspect]
     Indication: NASOPHARYNGITIS
     Dosage: 2 TABLETS EVERY 4-6 HOURS ORAL
     Route: 048
     Dates: start: 20041101
  2. BUDESONIDE [Suspect]
     Indication: HYPERSENSITIVITY
     Dosage: ONCE A DAY

REACTIONS (2)
  - DRUG EXPOSURE DURING PREGNANCY [None]
  - RETAINED PLACENTA OR MEMBRANES [None]
